FAERS Safety Report 20574912 (Version 13)
Quarter: 2023Q2

REPORT INFORMATION
  Report Type: Spontaneous
  Country: CA (occurrence: CA)
  Receive Date: 20220310
  Receipt Date: 20230413
  Transmission Date: 20230721
  Serious: No
  Sender: FDA-Public Use
  Company Number: CA-CELLTRION INC.-2022CA000925

PATIENT

DRUGS (16)
  1. INFLECTRA [Suspect]
     Active Substance: INFLIXIMAB-DYYB
     Indication: Crohn^s disease
     Dosage: 5 MG/KG, WEEK 0,2,6 THEN Q8WEEKS
     Route: 042
     Dates: start: 20211124, end: 20220228
  2. INFLECTRA [Suspect]
     Active Substance: INFLIXIMAB-DYYB
     Dosage: 5 MG/KG, WEEK 0,2,6 THEN Q8WEEKS
     Route: 042
     Dates: start: 20220106
  3. INFLECTRA [Suspect]
     Active Substance: INFLIXIMAB-DYYB
     Dosage: 300 MG, SUPPOSED TO RECEIVE 5 MG/KG
     Route: 042
     Dates: start: 20220228
  4. INFLECTRA [Suspect]
     Active Substance: INFLIXIMAB-DYYB
     Dosage: 500 MG, EVERY 4 WEEKS
     Route: 042
     Dates: start: 20220428
  5. INFLECTRA [Suspect]
     Active Substance: INFLIXIMAB-DYYB
     Dosage: 500 MG, EVERY 4 WEEKS
     Route: 042
     Dates: start: 20220428, end: 20221115
  6. INFLECTRA [Suspect]
     Active Substance: INFLIXIMAB-DYYB
     Dosage: 500 MG, EVERY 4 WEEKS
     Route: 042
     Dates: start: 20220531
  7. INFLECTRA [Suspect]
     Active Substance: INFLIXIMAB-DYYB
     Dosage: 500 MG, EVERY 4 WEEKS
     Route: 042
     Dates: start: 20220623
  8. INFLECTRA [Suspect]
     Active Substance: INFLIXIMAB-DYYB
     Dosage: 500 MG, EVERY 4 WEEKS
     Route: 042
     Dates: start: 20220721
  9. INFLECTRA [Suspect]
     Active Substance: INFLIXIMAB-DYYB
     Dosage: 500 MG, EVERY 4 WEEKS
     Route: 042
     Dates: start: 20221018
  10. INFLECTRA [Suspect]
     Active Substance: INFLIXIMAB-DYYB
     Dosage: 500 MG, EVERY 4 WEEKS
     Route: 042
     Dates: start: 20221115
  11. INFLECTRA [Suspect]
     Active Substance: INFLIXIMAB-DYYB
     Dosage: 500 MG, EVERY 6 WEEKS (NOT STARTED YET)
     Route: 042
  12. INFLECTRA [Suspect]
     Active Substance: INFLIXIMAB-DYYB
     Dosage: 500 MG (SUPPOSED TO RECEIVE 5MG/KG) EVERY 4 WEEKS
     Route: 042
     Dates: start: 20221214
  13. INFLECTRA [Suspect]
     Active Substance: INFLIXIMAB-DYYB
     Dosage: 500 MG (SUPPOSED TO RECEIVE 5MG/KG) EVERY 4 WEEKS
     Route: 042
     Dates: start: 20230110
  14. INFLECTRA [Suspect]
     Active Substance: INFLIXIMAB-DYYB
     Dosage: 315 MG (5MG/KG), EVERY 4 WEEKS
     Route: 042
     Dates: start: 20230209
  15. INFLECTRA [Suspect]
     Active Substance: INFLIXIMAB-DYYB
     Dosage: 315 MG (5MG/KG), EVERY 4 WEEKS
     Route: 042
     Dates: start: 20230309
  16. INFLECTRA [Suspect]
     Active Substance: INFLIXIMAB-DYYB
     Dosage: 315 MG (5MG/KG), EVERY 4 WEEKS
     Route: 042
     Dates: start: 20230404

REACTIONS (21)
  - Headache [Recovered/Resolved]
  - Nausea [Recovered/Resolved]
  - Vaginal flatulence [Not Recovered/Not Resolved]
  - Condition aggravated [Not Recovered/Not Resolved]
  - Hot flush [Unknown]
  - Alopecia [Not Recovered/Not Resolved]
  - COVID-19 [Unknown]
  - Pollakiuria [Not Recovered/Not Resolved]
  - Feeling abnormal [Unknown]
  - Nasopharyngitis [Unknown]
  - Fistula [Unknown]
  - Gastrointestinal inflammation [Unknown]
  - Malaise [Unknown]
  - Limb discomfort [Unknown]
  - Off label use [Unknown]
  - Off label use [Unknown]
  - Off label use [Unknown]
  - Intentional product use issue [Unknown]
  - Inappropriate schedule of product administration [Unknown]
  - Incorrect dose administered [Unknown]
  - Muscle spasms [Not Recovered/Not Resolved]

NARRATIVE: CASE EVENT DATE: 20220101
